FAERS Safety Report 10166193 (Version 1)
Quarter: 2014Q2

REPORT INFORMATION
  Report Type: Spontaneous
  Country: US (occurrence: US)
  Receive Date: 20140512
  Receipt Date: 20140512
  Transmission Date: 20141212
  Serious: No
  Sender: FDA-Public Use
  Company Number: US-BIOGENIDEC-2014BI041243

PATIENT
  Age: 54 Year
  Sex: Female

DRUGS (1)
  1. AVONEX [Suspect]
     Indication: MULTIPLE SCLEROSIS
     Route: 030
     Dates: start: 19960501

REACTIONS (5)
  - Musculoskeletal disorder [Unknown]
  - Fall [Recovered/Resolved]
  - Limb discomfort [Unknown]
  - Eye disorder [Unknown]
  - Gait disturbance [Unknown]
